FAERS Safety Report 8379477-5 (Version None)
Quarter: 2012Q2

REPORT INFORMATION
  Report Type: 
  Country: None (occurrence: None)
  Receive Date: 20120523
  Receipt Date: 20120514
  Transmission Date: 20120825
  Serious: Yes (Other)
  Sender: FDA-Public Use
  Company Number: CA-JNJFOC-20120512703

PATIENT
  Sex: Male
  Weight: 84.8 kg

DRUGS (3)
  1. REMICADE [Suspect]
     Indication: CROHN'S DISEASE
     Route: 042
  2. AZATHIOPRINE [Concomitant]
     Route: 065
  3. OLMESARTAN MEDOXOMIL [Concomitant]
     Route: 065

REACTIONS (2)
  - ABDOMINAL PAIN LOWER [None]
  - POLYP [None]
